FAERS Safety Report 17822689 (Version 2)
Quarter: 2020Q2

REPORT INFORMATION
  Report Type: Spontaneous
  Country: ES (occurrence: ES)
  Receive Date: 20200526
  Receipt Date: 20200624
  Transmission Date: 20200714
  Serious: Yes (Life-Threatening, Hospitalization, Other)
  Sender: FDA-Public Use
  Company Number: ES-SUN PHARMACEUTICAL INDUSTRIES LTD-2020RR-248007

PATIENT
  Age: 45 Year
  Sex: Male

DRUGS (6)
  1. QUETIAPINA (1136A) [Interacting]
     Active Substance: QUETIAPINE
     Indication: PRODUCT USED FOR UNKNOWN INDICATION
     Dosage: IN TOTAL
     Route: 048
     Dates: start: 20191023, end: 20191023
  2. PROPRANOLOL (2218A) [Concomitant]
     Active Substance: PROPRANOLOL HYDROCHLORIDE
     Indication: HYPERTENSION
     Dosage: IN TOTAL
     Route: 048
     Dates: start: 20191023, end: 20191023
  3. OLMESARTAN MEDOXOMILO (9696NQ) [Concomitant]
     Dosage: ()
     Route: 048
     Dates: start: 20191023, end: 20191023
  4. PREGABALIN. [Suspect]
     Active Substance: PREGABALIN
     Indication: PRODUCT USED FOR UNKNOWN INDICATION
     Dosage: UNK
     Route: 048
     Dates: start: 20191023, end: 20191023
  5. PROPRANOLOL (2218A) [Concomitant]
     Active Substance: PROPRANOLOL HYDROCHLORIDE
     Dosage: IN TOTAL
     Route: 048
     Dates: end: 20191022
  6. OLMESARTAN MEDOXOMILO (9696NQ) [Concomitant]
     Indication: HYPERTENSION
     Dosage: 40 MILLIGRAM, DAILY
     Route: 048
     Dates: start: 20170727, end: 20191022

REACTIONS (3)
  - Suicide attempt [Unknown]
  - Intentional overdose [Recovered/Resolved]
  - Coma [Recovered/Resolved]

NARRATIVE: CASE EVENT DATE: 20191023
